FAERS Safety Report 24625825 (Version 1)
Quarter: 2024Q4

REPORT INFORMATION
  Report Type: Spontaneous
  Country: US (occurrence: US)
  Receive Date: 20241115
  Receipt Date: 20241115
  Transmission Date: 20250115
  Serious: No
  Sender: ANI
  Company Number: US-ANIPHARMA-2024-US-048686

PATIENT
  Age: 58 Year
  Sex: Male

DRUGS (5)
  1. CORTICOTROPIN [Suspect]
     Active Substance: CORTICOTROPIN
     Indication: Gout
     Dosage: 80 UNITS SUBCUTANEOUS TWICE WEEKLY FOR FLARES
     Route: 058
  2. JANUVIA [Concomitant]
     Active Substance: SITAGLIPTIN PHOSPHATE
  3. LISINOPRIL [Concomitant]
     Active Substance: LISINOPRIL
  4. TYLENOL EXTRA STRENGTH [Concomitant]
     Active Substance: ACETAMINOPHEN
  5. KRYSTEXXA [Concomitant]
     Active Substance: PEGLOTICASE
     Indication: Product used for unknown indication

REACTIONS (4)
  - Product dose omission issue [Unknown]
  - Peripheral swelling [Unknown]
  - Pain [Unknown]
  - Blood glucose increased [Unknown]
